FAERS Safety Report 14939680 (Version 1)
Quarter: 2018Q2

REPORT INFORMATION
  Report Type: Spontaneous
  Country: US (occurrence: US)
  Receive Date: 20180507
  Receipt Date: 20180507
  Transmission Date: 20180711
  Serious: Yes (Hospitalization, Congenital Anomaly, Other)
  Sender: FDA-Public Use
  Company Number: None

PATIENT
  Age: 59 Year
  Sex: Female

DRUGS (13)
  1. LEXAPRO [Concomitant]
     Active Substance: ESCITALOPRAM OXALATE
  2. MONTELUKAST [Concomitant]
     Active Substance: MONTELUKAST SODIUM
  3. MULTI-VITAMIN [Concomitant]
     Active Substance: .ALPHA.-TOCOPHEROL ACETATE, DL-\ASCORBIC ACID\CYANOCOBALAMIN\FLUORIDE ION\FOLIC ACID\NIACIN\PYRIDOXINE\RIBOFLAVIN\THIAMINE\VITAMIN A\VITAMIN D
  4. XELJANZ [Suspect]
     Active Substance: TOFACITINIB CITRATE
     Indication: RHEUMATOID ARTHRITIS
     Route: 048
     Dates: start: 20170323
  5. PROTONIX [Concomitant]
     Active Substance: PANTOPRAZOLE SODIUM
  6. VITAMIN D3 [Concomitant]
     Active Substance: CHOLECALCIFEROL
  7. FUROSEMIDE. [Concomitant]
     Active Substance: FUROSEMIDE
  8. ACTHREL [Concomitant]
     Active Substance: CORTICORELIN OVINE TRIFLUTATE
  9. RAYOS [Concomitant]
     Active Substance: PREDNISONE
  10. SULFASALAZINE DELAYED-RELEASE [Concomitant]
     Active Substance: SULFASALAZINE
  11. POT CL MICRO [Concomitant]
  12. AMITRIPTYLIN [Concomitant]
     Active Substance: AMITRIPTYLINE
  13. PLAQUENIL [Concomitant]
     Active Substance: HYDROXYCHLOROQUINE SULFATE

REACTIONS (1)
  - Drug dose omission [None]

NARRATIVE: CASE EVENT DATE: 20180410
